FAERS Safety Report 13108777 (Version 1)
Quarter: 2017Q1

REPORT INFORMATION
  Report Type: Spontaneous
  Country: TW (occurrence: TW)
  Receive Date: 20170112
  Receipt Date: 20170112
  Transmission Date: 20170428
  Serious: Yes (Other)
  Sender: FDA-Public Use
  Company Number: TW-PFIZER INC-2017006647

PATIENT
  Sex: Female

DRUGS (2)
  1. DOSTINEX [Suspect]
     Active Substance: CABERGOLINE
     Indication: PITUITARY TUMOUR
     Dosage: 1 DF, WEEKLY
     Route: 048
     Dates: start: 2004, end: 2006
  2. DOSTINEX [Suspect]
     Active Substance: CABERGOLINE
     Dosage: UNK
     Route: 048
     Dates: start: 2010, end: 2016

REACTIONS (6)
  - Menopause [Unknown]
  - Blood bilirubin increased [Unknown]
  - Metastases to lung [Unknown]
  - Metastases to liver [Unknown]
  - Haemorrhage [Unknown]
  - Uterine leiomyoma [Unknown]

NARRATIVE: CASE EVENT DATE: 2006
